FAERS Safety Report 10154762 (Version 1)
Quarter: 2014Q2

REPORT INFORMATION
  Report Type: Spontaneous
  Country: US (occurrence: US)
  Receive Date: 20140506
  Receipt Date: 20140506
  Transmission Date: 20141212
  Serious: No
  Sender: FDA-Public Use
  Company Number: US-PFIZER INC-2014121535

PATIENT
  Age: 68 Year
  Sex: Female
  Weight: 86.17 kg

DRUGS (2)
  1. CADUET [Suspect]
     Indication: HYPERTENSION
     Dosage: [AMLODIPINE BESILATE 10 MG]/[ATORVASTATIN CALCIUM 20 MG], DAILY
     Dates: start: 2010, end: 2013
  2. CADUET [Suspect]
     Indication: BLOOD CHOLESTEROL INCREASED

REACTIONS (1)
  - Peripheral swelling [Unknown]
